FAERS Safety Report 11747184 (Version 1)
Quarter: 2015Q4

REPORT INFORMATION
  Report Type: Spontaneous
  Country: MY (occurrence: MY)
  Receive Date: 20151117
  Receipt Date: 20151117
  Transmission Date: 20160304
  Serious: Yes (Other)
  Sender: FDA-Public Use
  Company Number: MY-TEVA-608782ISR

PATIENT
  Age: 7 Year
  Sex: Male

DRUGS (3)
  1. ETOPOSIDE. [Suspect]
     Active Substance: ETOPOSIDE
     Indication: ACUTE BIPHENOTYPIC LEUKAEMIA
     Route: 042
  2. DAUNORUBICIN [Suspect]
     Active Substance: DAUNORUBICIN
     Indication: ACUTE BIPHENOTYPIC LEUKAEMIA
     Route: 042
  3. CYTARABINE. [Suspect]
     Active Substance: CYTARABINE
     Indication: ACUTE BIPHENOTYPIC LEUKAEMIA
     Route: 042

REACTIONS (1)
  - Posterior reversible encephalopathy syndrome [Recovering/Resolving]
